FAERS Safety Report 25322687 (Version 4)
Quarter: 2025Q3

REPORT INFORMATION
  Report Type: Spontaneous
  Country: US (occurrence: US)
  Receive Date: 20250516
  Receipt Date: 20250912
  Transmission Date: 20251021
  Serious: No
  Sender: BRISTOL-MYERS SQUIBB COMPANY
  Company Number: US-BRISTOL-MYERS SQUIBB COMPANY-2025-071188

PATIENT
  Age: 57 Year
  Sex: Female

DRUGS (37)
  1. ZEPOSIA [Suspect]
     Active Substance: OZANIMOD HYDROCHLORIDE
     Indication: Multiple sclerosis
  2. ABILIFY [Concomitant]
     Active Substance: ARIPIPRAZOLE
     Indication: Depression
     Dates: start: 20110304
  3. ADDERALL [Concomitant]
     Active Substance: AMPHETAMINE ASPARTATE\AMPHETAMINE SULFATE\DEXTROAMPHETAMINE SACCHARATE\DEXTROAMPHETAMINE SULFATE
     Indication: Product used for unknown indication
  4. ADDERALL [Concomitant]
     Active Substance: AMPHETAMINE ASPARTATE\AMPHETAMINE SULFATE\DEXTROAMPHETAMINE SACCHARATE\DEXTROAMPHETAMINE SULFATE
  5. ALBUTEROL [Concomitant]
     Active Substance: ALBUTEROL
     Indication: Product used for unknown indication
  6. ASPIRI-81 [Concomitant]
     Indication: Prophylaxis
     Dates: start: 20210120
  7. ATORVASTATIN [Concomitant]
     Active Substance: ATORVASTATIN
     Indication: Product used for unknown indication
  8. AZELASTINE [Concomitant]
     Active Substance: AZELASTINE
     Indication: Rhinitis
     Dates: start: 20250611
  9. BACLOFEN [Concomitant]
     Active Substance: BACLOFEN
     Indication: Product used for unknown indication
     Dosage: TAKE 1 AND 1/2 TABLETS BY MOUTH
     Dates: start: 20090604
  10. CINNAMON [Concomitant]
     Active Substance: CINNAMON
     Indication: Supplementation therapy
     Dates: start: 20210120
  11. COLACE [Concomitant]
     Active Substance: DOCUSATE SODIUM
     Indication: Constipation
  12. COREG [Concomitant]
     Active Substance: CARVEDILOL
     Indication: Hypertension
     Dates: start: 20190502
  13. CYCLOBENZAPRINE [Concomitant]
     Active Substance: CYCLOBENZAPRINE
     Indication: Vitamin B12 deficiency
     Dates: start: 20141124
  14. FOSAMAX [Concomitant]
     Active Substance: ALENDRONATE SODIUM
     Indication: Osteoporosis
     Dates: start: 20250611
  15. FOSAMAX [Concomitant]
     Active Substance: ALENDRONATE SODIUM
     Indication: Infection
     Dates: start: 20250611, end: 20250616
  16. FROVA [Concomitant]
     Active Substance: FROVATRIPTAN SUCCINATE
     Indication: Migraine
     Dates: start: 20090204
  17. LEVOTHYROXINE [Concomitant]
     Active Substance: LEVOTHYROXINE
     Indication: Hypothyroidism
     Dates: start: 20221111
  18. MARINOL [MECOBALAMIN] [Concomitant]
     Indication: Nausea
     Dates: start: 20180808
  19. MAXALT [Concomitant]
     Active Substance: RIZATRIPTAN BENZOATE
     Indication: Migraine
     Dates: start: 20250611
  20. NORCO [Concomitant]
     Active Substance: ACETAMINOPHEN\HYDROCODONE BITARTRATE
     Indication: Multiple sclerosis
     Dosage: 10-325MG
     Dates: start: 20131226
  21. NUVIGIL [Concomitant]
     Active Substance: ARMODAFINIL
     Indication: Fatigue
  22. OZEMPIC [Concomitant]
     Active Substance: SEMAGLUTIDE
     Indication: Type 2 diabetes mellitus
     Dates: start: 20250611
  23. RESTORIL [Concomitant]
     Active Substance: TEMAZEPAM
     Indication: Insomnia
  24. PYRIDIUM [Concomitant]
     Active Substance: PHENAZOPYRIDINE
     Indication: Urinary tract infection
     Dates: start: 20241210
  25. ROSUVASTATIN [Concomitant]
     Active Substance: ROSUVASTATIN
     Indication: Blood cholesterol
     Dates: start: 20250611
  26. SINGULAIR [Concomitant]
     Active Substance: MONTELUKAST SODIUM
     Indication: Hypersensitivity
  27. CYANOCOBALAMIN\DEXPANTHENOL\NIACINAMIDE\PYRIDOXINE HYDROCHLORIDE\RIBOF [Concomitant]
     Active Substance: CYANOCOBALAMIN\DEXPANTHENOL\NIACINAMIDE\PYRIDOXINE HYDROCHLORIDE\RIBOFLAVIN 5^-PHOSPHATE SODIUM\THIA
     Indication: Vitamin B12 deficiency
     Dates: start: 20191219
  28. SYMBICORT [Concomitant]
     Active Substance: BUDESONIDE\FORMOTEROL FUMARATE DIHYDRATE
     Indication: Product used for unknown indication
     Dosage: 160-4.5 MCG  2 PUFS BID
     Dates: start: 20220825
  29. TOPAMAX [Concomitant]
     Active Substance: TOPIRAMATE
     Indication: Migraine
     Dates: start: 20120312
  30. VALIUM [Concomitant]
     Active Substance: DIAZEPAM
     Indication: Anxiety
     Dosage: 1 PO 30 MINUTES PRIOR TO MRI
     Dates: start: 20090119
  31. VITAMIN D3 [Concomitant]
     Active Substance: CHOLECALCIFEROL
     Indication: Vitamin D deficiency
     Dosage: 5000
     Dates: start: 20110630
  32. VITAMIN B12 [Concomitant]
     Active Substance: CYANOCOBALAMIN
     Indication: Prophylaxis
     Dates: start: 20141124
  33. VITAMIN C [Concomitant]
     Active Substance: ASCORBIC ACID
     Indication: Prophylaxis
     Dates: start: 20210120
  34. WELLBUTRIN [Concomitant]
     Active Substance: BUPROPION HYDROCHLORIDE
     Indication: Depression
     Dates: start: 20170809
  35. XANAX [Concomitant]
     Active Substance: ALPRAZOLAM
     Indication: Anxiety
     Dates: start: 20100916
  36. ZETIA [Concomitant]
     Active Substance: EZETIMIBE
     Indication: Blood cholesterol increased
     Dates: start: 20180808
  37. ZINC [Concomitant]
     Active Substance: ZINC
     Indication: Prophylaxis

REACTIONS (1)
  - Hepatic enzyme increased [Unknown]
